FAERS Safety Report 21108379 (Version 4)
Quarter: 2022Q4

REPORT INFORMATION
  Report Type: Report from Study
  Country: IL (occurrence: IL)
  Receive Date: 20220720
  Receipt Date: 20221007
  Transmission Date: 20230113
  Serious: Yes (Hospitalization, Other)
  Sender: FDA-Public Use
  Company Number: IL-ABBVIE-22K-082-4474219-00

PATIENT
  Age: 78 Year
  Sex: Male

DRUGS (2)
  1. CARBIDOPA\LEVODOPA [Suspect]
     Active Substance: CARBIDOPA\LEVODOPA
     Indication: Parkinson^s disease
     Route: 050
     Dates: start: 20170827
  2. CARBIDOPA\LEVODOPA [Suspect]
     Active Substance: CARBIDOPA\LEVODOPA
     Dosage: MORNING DOSE 11.0 ML, CONTINUOUS DAY 3.6 ML/HOUR, EXTRA DOSE 2.5 ML ?THERAPY DURATION 16 H?MOVED ...
     Route: 050

REACTIONS (6)
  - Blindness transient [Recovered/Resolved]
  - Basilar artery occlusion [Recovering/Resolving]
  - Urinary tract infection [Not Recovered/Not Resolved]
  - Medical device site granuloma [Not Recovered/Not Resolved]
  - Loss of consciousness [Unknown]
  - Stoma site haemorrhage [Not Recovered/Not Resolved]

NARRATIVE: CASE EVENT DATE: 20220828
